FAERS Safety Report 8023610-1 (Version None)
Quarter: 2012Q1

REPORT INFORMATION
  Report Type: 
  Country: None (occurrence: None)
  Receive Date: 20120104
  Receipt Date: 20120104
  Transmission Date: 20120608
  Serious: Yes (Other)
  Sender: FDA-Public Use
  Company Number: None

PATIENT
  Sex: Female

DRUGS (1)
  1. FORTEO [Suspect]
     Dosage: 20MCG SQ DAILY
     Route: 058
     Dates: start: 20110714, end: 20111107

REACTIONS (3)
  - TENDERNESS [None]
  - SWELLING [None]
  - HEADACHE [None]
